FAERS Safety Report 18944145 (Version 4)
Quarter: 2022Q2

REPORT INFORMATION
  Report Type: Report from Study
  Country: CO (occurrence: CO)
  Receive Date: 20210226
  Receipt Date: 20220610
  Transmission Date: 20220721
  Serious: Yes (Other)
  Sender: FDA-Public Use
  Company Number: NVSC2020CO345164

PATIENT
  Age: 41 Year
  Sex: Female
  Weight: 63 kg

DRUGS (7)
  1. AFINITOR [Suspect]
     Active Substance: EVEROLIMUS
     Indication: Breast cancer
     Dosage: 10 MG, QD
     Route: 048
  2. AFINITOR [Suspect]
     Active Substance: EVEROLIMUS
     Dosage: 10 MG, QD
     Route: 048
     Dates: start: 20200618
  3. AFINITOR [Suspect]
     Active Substance: EVEROLIMUS
     Dosage: 5 MG
     Route: 048
  4. AFINITOR [Suspect]
     Active Substance: EVEROLIMUS
     Dosage: 10 MG, QD (1 TABLET DAILY OF 10 MG)
     Route: 048
  5. EXEMESTANE [Concomitant]
     Active Substance: EXEMESTANE
     Indication: Breast cancer
     Dosage: 25 MG, QD
     Route: 048
     Dates: start: 20200618
  6. CALCIUM [Concomitant]
     Active Substance: CALCIUM
     Indication: Metastases to bone
     Dosage: 60 MG, QD (4 YEARS AGO)
     Route: 048
  7. ALENDRONIC ACID [Concomitant]
     Active Substance: ALENDRONIC ACID
     Indication: Metastases to bone
     Dosage: 4 MG, EVERY SIX MONTHS (4 YEARS AGO)
     Route: 042

REACTIONS (15)
  - COVID-19 [Unknown]
  - Pneumonia [Unknown]
  - Lung disorder [Unknown]
  - Headache [Unknown]
  - Oral mucosal exfoliation [Unknown]
  - Illness [Unknown]
  - Oral mucosal blistering [Unknown]
  - Weight increased [Unknown]
  - Cough [Recovered/Resolved]
  - Pyrexia [Recovered/Resolved]
  - Dyspnoea [Recovered/Resolved]
  - Bone pain [Recovered/Resolved]
  - Ageusia [Recovered/Resolved]
  - Anosmia [Recovered/Resolved]
  - Back pain [Unknown]

NARRATIVE: CASE EVENT DATE: 20201101
